FAERS Safety Report 6530943-4 (Version None)
Quarter: 2010Q1

REPORT INFORMATION
  Report Type: 
  Country: None (occurrence: None)
  Receive Date: 20100108
  Receipt Date: 20090831
  Transmission Date: 20100710
  Serious: No
  Sender: FDA-Public Use
  Company Number: A0793970A

PATIENT
  Age: 60 Year
  Sex: Female

DRUGS (7)
  1. LOVAZA [Suspect]
     Dosage: 2CAPL TWICE PER DAY
     Route: 048
     Dates: start: 20070101
  2. NEXIUM [Concomitant]
  3. SYNTHROID [Concomitant]
  4. PRAVASTATIN [Concomitant]
  5. ALENDRONATE SODIUM [Concomitant]
  6. AMITRIPTYLINE HCL [Concomitant]
  7. CYMBALTA [Concomitant]

REACTIONS (4)
  - INSOMNIA [None]
  - MALAISE [None]
  - NAUSEA [None]
  - PRODUCT QUALITY ISSUE [None]
